FAERS Safety Report 8258495-1 (Version None)
Quarter: 2012Q2

REPORT INFORMATION
  Report Type: 
  Country: None (occurrence: None)
  Receive Date: 20120404
  Receipt Date: 20120330
  Transmission Date: 20120825
  Serious: Yes (Other)
  Sender: FDA-Public Use
  Company Number: IT-JNJFOC-20120400012

PATIENT
  Age: 41 Year
  Sex: Male

DRUGS (7)
  1. PREZISTA [Suspect]
     Route: 065
  2. TRUVADA [Suspect]
     Route: 065
     Dates: start: 20120328, end: 20120328
  3. NORVIR [Suspect]
     Indication: HIV TEST POSITIVE
     Route: 065
     Dates: start: 20120328, end: 20120328
  4. NORVIR [Suspect]
     Route: 065
  5. PREZISTA [Suspect]
     Indication: HIV TEST POSITIVE
     Route: 065
     Dates: start: 20120328, end: 20120328
  6. TRUVADA [Suspect]
     Indication: HIV TEST POSITIVE
     Route: 065
  7. KETOPROFEN [Suspect]
     Indication: PRODUCT USED FOR UNKNOWN INDICATION
     Route: 065
     Dates: start: 20120327, end: 20120327

REACTIONS (2)
  - SELF INJURIOUS BEHAVIOUR [None]
  - INTENTIONAL DRUG MISUSE [None]
